FAERS Safety Report 5073384-1 (Version None)
Quarter: 2006Q3

REPORT INFORMATION
  Report Type: 
  Country: None (occurrence: None)
  Receive Date: 20060803
  Receipt Date: 20060719
  Transmission Date: 20061208
  Serious: Yes (Other)
  Sender: FDA-Public Use
  Company Number: 2006S1006702

PATIENT
  Age: 26 Year
  Sex: Female
  Weight: 55.9739 kg

DRUGS (1)
  1. AMITRIPTYLINE HCL [Suspect]
     Indication: MIGRAINE PROPHYLAXIS
     Dosage: 100 MG; PO
     Route: 048
     Dates: start: 20040929, end: 20041104

REACTIONS (1)
  - NEPHROLITHIASIS [None]
